FAERS Safety Report 5253651-9 (Version None)
Quarter: 2007Q1

REPORT INFORMATION
  Report Type: 
  Country: None (occurrence: None)
  Receive Date: 20070301
  Receipt Date: 20070217
  Transmission Date: 20070707
  Serious: Yes (Other)
  Sender: FDA-Public Use
  Company Number: US-PFIZER INC-2007014124

PATIENT
  Sex: Female
  Weight: 70.3 kg

DRUGS (17)
  1. CHANTIX [Suspect]
     Indication: EX-SMOKER
     Route: 048
  2. NEXIUM [Concomitant]
     Indication: STOMACH DISCOMFORT
  3. MECLIZINE [Concomitant]
  4. TRAZODONE HCL [Concomitant]
  5. RANITIDINE [Concomitant]
     Indication: STOMACH DISCOMFORT
  6. HYDROCODONE [Concomitant]
  7. NEURONTIN [Concomitant]
  8. ALLERGY MEDICATION [Concomitant]
  9. METHADOSE [Concomitant]
     Indication: PAIN
  10. SYNTHROID [Concomitant]
     Indication: THYROID DISORDER
  11. NORCO [Concomitant]
  12. KLOR-CON [Concomitant]
  13. PROBENECID [Concomitant]
     Indication: GOUT
  14. CARTIA XT [Concomitant]
  15. PROMETHAZINE [Concomitant]
  16. FUROSEMIDE [Concomitant]
  17. CLONOPIN [Concomitant]

REACTIONS (5)
  - ASTHENIA [None]
  - CHEST PAIN [None]
  - DYSPNOEA [None]
  - HEART RATE INCREASED [None]
  - THROAT TIGHTNESS [None]
